FAERS Safety Report 12522829 (Version 1)
Quarter: 2016Q3

REPORT INFORMATION
  Report Type: Spontaneous
  Country: US (occurrence: US)
  Receive Date: 20160701
  Receipt Date: 20160701
  Transmission Date: 20161109
  Serious: Yes (Other)
  Sender: FDA-Public Use
  Company Number: US-TEVA-671792USA

PATIENT
  Age: 22 Year
  Sex: Female

DRUGS (1)
  1. ZECUITY [Suspect]
     Active Substance: SUMATRIPTAN SUCCINATE
     Indication: MIGRAINE
     Route: 062
     Dates: start: 20160303, end: 20160303

REACTIONS (7)
  - Application site erythema [Recovering/Resolving]
  - Application site discolouration [Recovering/Resolving]
  - Incorrect drug administration duration [Unknown]
  - Application site burn [Recovering/Resolving]
  - Product leakage [Unknown]
  - Drug effect incomplete [Unknown]
  - Product adhesion issue [Unknown]

NARRATIVE: CASE EVENT DATE: 20160303
